FAERS Safety Report 11031751 (Version 1)
Quarter: 2015Q2

REPORT INFORMATION
  Report Type: Report from Study
  Country: BE (occurrence: BE)
  Receive Date: 20150415
  Receipt Date: 20150415
  Transmission Date: 20150821
  Serious: Yes (Hospitalization)
  Sender: FDA-Public Use
  Company Number: BE-DSJP-DSD-2015-111843

PATIENT

DRUGS (19)
  1. COVERSYL                           /00790702/ [Concomitant]
     Active Substance: PERINDOPRIL
     Indication: CARDIAC FAILURE
     Dosage: 2.5 MG, QD
     Route: 048
     Dates: start: 20150121, end: 20150121
  2. ALDACTONE [Concomitant]
     Active Substance: SPIRONOLACTONE
     Indication: CARDIAC FAILURE
     Dosage: 25 MG, QD
     Route: 048
     Dates: start: 20150121
  3. PANTOMED                           /00178901/ [Concomitant]
     Indication: ANTACID THERAPY
     Dosage: 40 MG, QD
     Route: 048
     Dates: start: 20150122
  4. CHLOROPOTASSURIL [Concomitant]
     Indication: ELECTROLYTE SUBSTITUTION THERAPY
     Dosage: 10 ML, QD
     Route: 048
     Dates: start: 20150123, end: 20150124
  5. BURINEX [Concomitant]
     Active Substance: BUMETANIDE
     Indication: CARDIAC FAILURE
     Dosage: 1 MG, QD
     Route: 048
     Dates: start: 20150123, end: 20150123
  6. FRAXIPARINE                        /01437701/ [Concomitant]
     Active Substance: NADROPARIN CALCIUM
     Indication: THROMBOSIS PROPHYLAXIS
     Dosage: 0.6 ML, BID
     Route: 058
     Dates: start: 20150121, end: 20150123
  7. ZANTAC [Concomitant]
     Active Substance: RANITIDINE HYDROCHLORIDE
     Indication: ANTACID THERAPY
     Dosage: 150 MG, TID
     Route: 048
     Dates: start: 20150121, end: 20150122
  8. LANOXIN [Concomitant]
     Active Substance: DIGOXIN
     Dosage: 0.125 MG, QD
     Route: 048
     Dates: start: 20150122
  9. KREDEX [Concomitant]
     Active Substance: CARVEDILOL
     Dosage: 3.15 MG, QD
     Route: 048
     Dates: start: 20150122, end: 20150123
  10. BURINEX [Concomitant]
     Active Substance: BUMETANIDE
     Dosage: 1 MG, EVERY 2 DAYS
     Route: 048
     Dates: start: 20150125
  11. LANOXIN [Concomitant]
     Active Substance: DIGOXIN
     Indication: ARRHYTHMIA
     Dosage: 2 ML, SINGLE
     Route: 042
     Dates: start: 20150121, end: 20150121
  12. BURINEX [Concomitant]
     Active Substance: BUMETANIDE
     Dosage: 4 ML, SINGLE
     Route: 042
     Dates: start: 20150122, end: 20150122
  13. MOVICOL [Concomitant]
     Active Substance: POLYETHYLENE GLYCOL 3350\POTASSIUM CHLORIDE\SODIUM BICARBONATE\SODIUM CHLORIDE
     Indication: CONSTIPATION
     Dosage: 1 DF, PRN
     Route: 048
     Dates: start: 20150125, end: 20150130
  14. DU-176B [Suspect]
     Active Substance: EDOXABAN TOSYLATE
     Indication: ATRIAL FIBRILLATION
     Dosage: 60 MG
     Route: 048
     Dates: start: 20150124, end: 20150223
  15. COVERSYL                           /00790702/ [Concomitant]
     Active Substance: PERINDOPRIL
     Dosage: 5 MG, QD
     Route: 048
     Dates: start: 20150122, end: 20150124
  16. CORUNO [Concomitant]
     Active Substance: MOLSIDOMINE
     Indication: CARDIAC FAILURE
     Dosage: 16 MG, QD
     Route: 048
     Dates: start: 20150121, end: 20150126
  17. KREDEX [Concomitant]
     Active Substance: CARVEDILOL
     Dosage: 12.5 MG, BID
     Route: 048
     Dates: start: 20150124
  18. COVERSYL                           /00790702/ [Concomitant]
     Active Substance: PERINDOPRIL
     Dosage: 10 MG, QD
     Route: 048
     Dates: start: 20150125
  19. KREDEX [Concomitant]
     Active Substance: CARVEDILOL
     Indication: CARDIAC FAILURE
     Dosage: 6.25 MG, BID
     Route: 048
     Dates: start: 20150123, end: 20150124

REACTIONS (1)
  - Atrial fibrillation [Recovered/Resolved with Sequelae]

NARRATIVE: CASE EVENT DATE: 20150223
